FAERS Safety Report 17495615 (Version 3)
Quarter: 2022Q2

REPORT INFORMATION
  Report Type: Spontaneous
  Country: US (occurrence: US)
  Receive Date: 20200304
  Receipt Date: 20220415
  Transmission Date: 20220721
  Serious: No
  Sender: FDA-Public Use
  Company Number: US-PFIZER INC-2020093573

PATIENT
  Age: 75 Year
  Sex: Female

DRUGS (1)
  1. IBRANCE [Suspect]
     Active Substance: PALBOCICLIB
     Indication: Breast cancer female
     Dosage: 100 MG

REACTIONS (5)
  - Cognitive disorder [Unknown]
  - Full blood count abnormal [Unknown]
  - Crying [Unknown]
  - Nervousness [Unknown]
  - Underdose [Unknown]

NARRATIVE: CASE EVENT DATE: 20211101
